FAERS Safety Report 10082657 (Version 2)
Quarter: 2014Q2

REPORT INFORMATION
  Report Type: Spontaneous
  Country: IT (occurrence: IT)
  Receive Date: 20140416
  Receipt Date: 20140616
  Transmission Date: 20141212
  Serious: Yes (Hospitalization)
  Sender: FDA-Public Use
  Company Number: IT-ABBVIE-14P-083-1226824-00

PATIENT
  Age: 61 Year
  Sex: Male

DRUGS (3)
  1. FULCROSUPRA [Suspect]
     Indication: DYSLIPIDAEMIA
     Route: 048
     Dates: start: 20140318, end: 20140322
  2. ZANEDIP [Concomitant]
     Indication: HYPERTENSION
     Dates: start: 20140101, end: 20140319
  3. ZOPRANOL [Concomitant]
     Indication: PRODUCT USED FOR UNKNOWN INDICATION

REACTIONS (2)
  - Dermatitis bullous [Recovering/Resolving]
  - Dermatitis exfoliative [Recovering/Resolving]
